FAERS Safety Report 5360438-5 (Version None)
Quarter: 2007Q2

REPORT INFORMATION
  Report Type: 
  Country: None (occurrence: None)
  Receive Date: 20070618
  Receipt Date: 20070612
  Transmission Date: 20071010
  Serious: Yes (Death, Hospitalization)
  Sender: FDA-Public Use
  Company Number: HQWYE583712JUN07

PATIENT
  Age: 75 Year
  Sex: Female

DRUGS (3)
  1. AMIODARONE HYDROCHLORIDE [Suspect]
     Route: 048
     Dates: start: 20060301
  2. ALLOPURINOL [Suspect]
     Route: 048
     Dates: start: 20060301
  3. VIAGRA [Suspect]
     Indication: PULMONARY HYPERTENSION
     Route: 048
     Dates: start: 20060303

REACTIONS (3)
  - CARDIAC ARREST [None]
  - RASH GENERALISED [None]
  - RESPIRATORY DEPRESSION [None]
